FAERS Safety Report 6302381-0 (Version None)
Quarter: 2009Q3

REPORT INFORMATION
  Report Type: 
  Country: None (occurrence: None)
  Receive Date: 20090810
  Receipt Date: 20090801
  Transmission Date: 20100115
  Serious: Yes (Other)
  Sender: FDA-Public Use
  Company Number: PHBS2005BR14834

PATIENT
  Sex: Male
  Weight: 90 kg

DRUGS (9)
  1. EXELON [Suspect]
     Indication: DEMENTIA ALZHEIMER'S TYPE
     Dosage: 6 MG, BID
     Route: 048
     Dates: start: 20030101, end: 20051003
  2. ENALAPRIL MALEATE [Concomitant]
     Indication: HYPERTENSION
     Dosage: 5 MG, QD
     Route: 048
     Dates: start: 19990101
  3. ANCORON [Concomitant]
     Indication: CARDIAC DISORDER
     Dosage: 200 MG, QD
     Route: 048
     Dates: start: 20020101
  4. STILNOX [Concomitant]
     Indication: SLEEP DISORDER
     Dosage: 10 MG, QD
     Route: 048
     Dates: start: 20020101
  5. SIMVASTATIN [Concomitant]
     Dosage: 10 MG, QHS
     Route: 048
  6. XENICAL [Concomitant]
     Dosage: 120 MG, QHS
     Route: 065
  7. EFFEXOR XR [Concomitant]
     Dosage: 75 MG, QD
     Route: 048
  8. DIGEPLUS [Concomitant]
     Indication: DYSPEPSIA
     Dosage: UNK, QD
     Route: 048
     Dates: start: 20050801
  9. LANSOPRAZOLE [Concomitant]
     Dosage: 30 MG, BID
     Route: 048

REACTIONS (5)
  - ABDOMINAL PAIN UPPER [None]
  - APHTHOUS STOMATITIS [None]
  - DYSPEPSIA [None]
  - GASTRITIS [None]
  - OESOPHAGITIS [None]
